FAERS Safety Report 9788693 (Version 3)
Quarter: 2014Q1

REPORT INFORMATION
  Report Type: Spontaneous
  Country: US (occurrence: US)
  Receive Date: 20131230
  Receipt Date: 20140203
  Transmission Date: 20141002
  Serious: Yes (Other)
  Sender: FDA-Public Use
  Company Number: US-PFIZER INC-2013372980

PATIENT
  Age: 34 Year
  Sex: Female
  Weight: 102.95 kg

DRUGS (18)
  1. CELEBREX [Suspect]
     Indication: INFLAMMATION
     Dosage: 200 MG, 2X/DAY
     Route: 048
     Dates: end: 20131202
  2. XELJANZ [Suspect]
     Indication: RHEUMATOID ARTHRITIS
     Dosage: 5 MG, 2X/DAY
     Route: 048
     Dates: start: 201309, end: 20131125
  3. NUVARING [Suspect]
     Indication: ORAL CONTRACEPTION
     Dosage: UNK
  4. METHOTREXATE [Concomitant]
     Dosage: 2.5 MG, 7 TABLETS Q WEEK
  5. FOLIC ACID [Concomitant]
     Dosage: 1 MG, 1X/DAY
  6. ALPRAZOLAM [Concomitant]
     Dosage: 0.5 MG, 1X/DAY (QHS)
  7. FLOVENT [Concomitant]
     Dosage: 44 MCG/ ACT AEROSOL 2 PUFFS QHS
     Route: 055
  8. OMEPRAZOLE [Concomitant]
     Dosage: 40 MG, 1X/DAY
  9. ZYRTEC [Concomitant]
     Indication: HYPERSENSITIVITY
     Dosage: 10 MG, 1X/DAY
  10. ALBUTEROL SULFATE [Concomitant]
     Dosage: HFA 108 (90 BASE) MCG/ACT AEROSOL SOLUTION 2 PUFFS PRN
     Route: 055
  11. FISH OIL [Concomitant]
     Dosage: 1200 MG, 1X/DAY
  12. VITAMIN D3 [Concomitant]
     Dosage: 5000 IU, 1X/DAY
  13. PREDNISONE [Concomitant]
     Dosage: 5 MG, 2X/DAY WITH FOOD OR MILK
     Route: 048
  14. PREDNISONE [Concomitant]
     Dosage: 5 MG, 1X/DAY
  15. NORCO [Concomitant]
     Indication: PAIN
     Dosage: 10-325 MG, EVERY 4-6 HRS PRN
  16. ENBREL [Concomitant]
     Indication: RHEUMATOID ARTHRITIS
     Dosage: 50 MG, WEEKLY
     Dates: start: 2004
  17. PRISTIQ [Concomitant]
     Dosage: 100 MG, 1X/DAY
  18. XARELTO [Concomitant]
     Dosage: 20 MG, 1X/DAY WITH FOOD

REACTIONS (13)
  - Pulmonary embolism [Recovering/Resolving]
  - Deep vein thrombosis [Recovering/Resolving]
  - Embolism venous [Unknown]
  - Red blood cell sedimentation rate increased [Unknown]
  - Alanine aminotransferase increased [Unknown]
  - Tachycardia [Unknown]
  - Axillary pain [Unknown]
  - Dyspnoea [Unknown]
  - Arthralgia [Recovering/Resolving]
  - Antiphospholipid antibodies positive [Unknown]
  - Chest pain [Unknown]
  - Drug ineffective [Unknown]
  - Neutrophil count increased [Unknown]
